FAERS Safety Report 24921961 (Version 1)
Quarter: 2025Q1

REPORT INFORMATION
  Report Type: Spontaneous
  Country: JP (occurrence: JP)
  Receive Date: 20250204
  Receipt Date: 20250204
  Transmission Date: 20250409
  Serious: Yes (Hospitalization)
  Sender: ACCORD
  Company Number: JP-Accord-467342

PATIENT
  Age: 51 Year
  Sex: Female

DRUGS (2)
  1. CLOZAPINE [Suspect]
     Active Substance: CLOZAPINE
     Indication: Schizophrenia
     Dosage: INITIATED AT 12.5 MG/DAY AND GRADUALLY INCREASED TO 250 MG/DAY AS PER THE REGIMEN
  2. CLOZAPINE [Suspect]
     Active Substance: CLOZAPINE
     Indication: Schizophrenia
     Dosage: INITIATED AT 12.5 MG/DAY AND GRADUALLY INCREASED TO 250 MG/DAY AS PER THE REGIMEN

REACTIONS (2)
  - Anaemia [Recovering/Resolving]
  - Zinc deficiency [Recovering/Resolving]
